FAERS Safety Report 7442019-2 (Version None)
Quarter: 2011Q2

REPORT INFORMATION
  Report Type: 
  Country: None (occurrence: None)
  Receive Date: 20110428
  Receipt Date: 20101220
  Transmission Date: 20111010
  Serious: Yes (Other)
  Sender: FDA-Public Use
  Company Number: US-BAYER-201033774NA

PATIENT
  Age: 45 Year
  Sex: Female

DRUGS (14)
  1. OMEGA B12 [Concomitant]
  2. YASMIN [Suspect]
     Indication: PRODUCT USED FOR UNKNOWN INDICATION
     Dosage: UNK
     Route: 048
     Dates: start: 20040101, end: 20090101
  3. LEVOXYL [Concomitant]
     Indication: HYPOTHYROIDISM
     Dosage: UNK
     Dates: start: 20020101
  4. ALLEGRA [Concomitant]
  5. NEXIUM [Concomitant]
     Dosage: UNK
     Dates: start: 20030101
  6. LINUM USITATISSIMUM [Concomitant]
  7. AZMACORT [Concomitant]
  8. B-COMPLEX [VITAMIN B NOS] [Concomitant]
  9. FEXOFENADINE [Concomitant]
     Dosage: 180 MG, UNK
  10. YAZ [Suspect]
     Indication: PRODUCT USED FOR UNKNOWN INDICATION
     Dosage: UNK
     Route: 048
     Dates: start: 20040101, end: 20090101
  11. OCELLA [Suspect]
     Indication: PRODUCT USED FOR UNKNOWN INDICATION
     Dosage: UNK
     Route: 048
     Dates: start: 20040101, end: 20090101
  12. OMEGA [Concomitant]
  13. NASONEX [Concomitant]
  14. MULTI-VITAMIN [Concomitant]

REACTIONS (6)
  - CHOLELITHIASIS [None]
  - INJURY [None]
  - CHOLESTEROSIS [None]
  - PAIN [None]
  - CHOLECYSTITIS CHRONIC [None]
  - BILIARY COLIC [None]
